FAERS Safety Report 4561393-8 (Version None)
Quarter: 2005Q1

REPORT INFORMATION
  Report Type: 
  Country: None (occurrence: None)
  Receive Date: 20050124
  Receipt Date: 20050111
  Transmission Date: 20050727
  Serious: Yes (Other)
  Sender: FDA-Public Use
  Company Number: 2004072645

PATIENT
  Age: 32 Year
  Sex: Male

DRUGS (4)
  1. GEODON [Suspect]
     Indication: SCHIZOPHRENIA
     Dosage: 80 MG (40 MG, 2 IN 1 D), ORAL
     Route: 048
  2. NAVANE [Suspect]
     Indication: SCHIZOPHRENIA
     Dosage: 10 MG (5 MG, 2 IN 1 D), ORAL
     Route: 048
     Dates: end: 20040827
  3. TRAZODONE HCL [Suspect]
     Indication: ILL-DEFINED DISORDER
  4. BENZTROPINE MESYLATE [Concomitant]

REACTIONS (1)
  - PRIAPISM [None]
